FAERS Safety Report 20572246 (Version 1)
Quarter: 2022Q1

REPORT INFORMATION
  Report Type: Spontaneous
  Country: US (occurrence: None)
  Receive Date: 20220308
  Receipt Date: 20220308
  Transmission Date: 20220423
  Serious: Yes (Disabling)
  Sender: FDA-Public Use
  Company Number: None

PATIENT
  Age: 54 Year
  Sex: Male
  Weight: 99.3 kg

DRUGS (1)
  1. OZEMPIC [Suspect]
     Active Substance: SEMAGLUTIDE
     Indication: Type 2 diabetes mellitus
     Dosage: OTHER QUANTITY : 1 INJECTION(S);?OTHER FREQUENCY : WEEKLY;?
     Route: 058
     Dates: start: 20211226, end: 20220130

REACTIONS (4)
  - Nausea [None]
  - Constipation [None]
  - Fatigue [None]
  - Hypothyroidism [None]

NARRATIVE: CASE EVENT DATE: 20220201
